FAERS Safety Report 12990322 (Version 5)
Quarter: 2021Q1

REPORT INFORMATION
  Report Type: Spontaneous
  Country: US (occurrence: US)
  Receive Date: 20161201
  Receipt Date: 20210215
  Transmission Date: 20210419
  Serious: No
  Sender: FDA-Public Use
  Company Number: US-PFIZER INC-2016559047

PATIENT
  Age: 59 Year
  Sex: Female

DRUGS (2)
  1. XELJANZ XR [Suspect]
     Active Substance: TOFACITINIB CITRATE
     Indication: RHEUMATOID ARTHRITIS
     Dosage: 11 MG, DAILY
     Route: 048
     Dates: start: 201610, end: 20201202
  2. XELJANZ XR [Suspect]
     Active Substance: TOFACITINIB CITRATE
     Dosage: 11 MG, DAILY
     Route: 048
     Dates: start: 20210125

REACTIONS (6)
  - Bone pain [Unknown]
  - Rash [Unknown]
  - Urinary tract infection [Recovered/Resolved]
  - Tooth disorder [Recovered/Resolved]
  - Pain [Unknown]
  - Onychomycosis [Unknown]

NARRATIVE: CASE EVENT DATE: 201610
